FAERS Safety Report 7982072-0 (Version None)
Quarter: 2011Q4

REPORT INFORMATION
  Report Type: 
  Country: None (occurrence: None)
  Receive Date: 20111214
  Receipt Date: 20111214
  Transmission Date: 20120403
  Serious: Yes (Life-Threatening, Hospitalization, Other)
  Sender: FDA-Public Use
  Company Number: None

PATIENT
  Age: 82 Year
  Sex: Female
  Weight: 78.0187 kg

DRUGS (2)
  1. DIBIGATRAN 150MG BI [Suspect]
     Indication: ATRIAL FIBRILLATION
     Dosage: 150MG BID ORAL 047
     Route: 048
     Dates: end: 20111007
  2. ASPIRIN [Concomitant]

REACTIONS (3)
  - DIEULAFOY'S VASCULAR MALFORMATION [None]
  - DISEASE RECURRENCE [None]
  - UPPER GASTROINTESTINAL HAEMORRHAGE [None]
